FAERS Safety Report 20059120 (Version 5)
Quarter: 2022Q4

REPORT INFORMATION
  Report Type: Other
  Country: CA (occurrence: None)
  Receive Date: 20211111
  Receipt Date: 20221007
  Transmission Date: 20230113
  Serious: Yes (Other)
  Sender: FDA-Public Use
  Company Number: CA-ROCHE-2918760

PATIENT
  Age: 58 Year
  Sex: Female

DRUGS (21)
  1. ACTEMRA [Suspect]
     Active Substance: TOCILIZUMAB
     Indication: Giant cell arteritis
     Route: 058
     Dates: start: 20210312
  2. ASPIRIN [Concomitant]
     Active Substance: ASPIRIN
     Indication: Product used for unknown indication
  3. DICLOFENAC [Concomitant]
     Active Substance: DICLOFENAC
     Indication: Product used for unknown indication
  4. DAPAGLIFLOZIN [Concomitant]
     Active Substance: DAPAGLIFLOZIN
     Indication: Product used for unknown indication
  5. GABAPENTIN [Concomitant]
     Active Substance: GABAPENTIN
     Indication: Product used for unknown indication
  6. JANUVIA [Concomitant]
     Active Substance: SITAGLIPTIN PHOSPHATE
     Indication: Product used for unknown indication
  7. METFORMIN [Concomitant]
     Active Substance: METFORMIN HYDROCHLORIDE
  8. PANTOPRAZOLE [Concomitant]
     Active Substance: PANTOPRAZOLE
     Indication: Product used for unknown indication
  9. PREDNISONE [Concomitant]
     Active Substance: PREDNISONE
     Indication: Product used for unknown indication
  10. RISEDRONATE SODIUM [Concomitant]
     Active Substance: RISEDRONATE SODIUM
     Indication: Product used for unknown indication
  11. SOLIFENACIN [Concomitant]
     Active Substance: SOLIFENACIN
     Indication: Product used for unknown indication
  12. SULFATRIM [Concomitant]
     Active Substance: SULFAMETHOXAZOLE\TRIMETHOPRIM
     Indication: Product used for unknown indication
  13. CALCIUM [Concomitant]
     Active Substance: CALCIUM
  14. ROSUVASTATIN [Concomitant]
     Active Substance: ROSUVASTATIN
  15. TYLENOL [Concomitant]
     Active Substance: ACETAMINOPHEN
  16. LANTUS [Concomitant]
     Active Substance: INSULIN GLARGINE
  17. ZOPICLONE [Concomitant]
     Active Substance: ZOPICLONE
  18. VITAMIN C [Concomitant]
     Active Substance: ASCORBIC ACID
  19. FOLIC ACID [Concomitant]
     Active Substance: FOLIC ACID
  20. CODEINE [Concomitant]
     Active Substance: CODEINE
  21. METHOTREXATE SODIUM [Concomitant]
     Active Substance: METHOTREXATE SODIUM

REACTIONS (32)
  - Pericarditis [Unknown]
  - Neuropathy peripheral [Unknown]
  - Eye haemorrhage [Unknown]
  - Cerebrovascular accident [Unknown]
  - Cataract [Unknown]
  - Swollen tongue [Recovering/Resolving]
  - Inflammation [Recovering/Resolving]
  - Back pain [Not Recovered/Not Resolved]
  - Ill-defined disorder [Unknown]
  - Rash [Unknown]
  - Herpes zoster [Unknown]
  - Excessive cerumen production [Unknown]
  - Dyspnoea [Unknown]
  - Dizziness [Unknown]
  - Dizziness [Unknown]
  - Inflammation [Unknown]
  - Malaise [Unknown]
  - Cardiovascular disorder [Unknown]
  - Hypoaesthesia [Unknown]
  - Illness [Unknown]
  - Influenza [Unknown]
  - Ear infection [Unknown]
  - Pain [Unknown]
  - Muscular weakness [Unknown]
  - Muscle tightness [Unknown]
  - Back disorder [Unknown]
  - Mouth ulceration [Recovered/Resolved]
  - Memory impairment [Unknown]
  - Muscle tightness [Unknown]
  - Neck pain [Unknown]
  - Spinal pain [Unknown]
  - Rash [Recovered/Resolved]

NARRATIVE: CASE EVENT DATE: 20210914
